FAERS Safety Report 10273639 (Version 2)
Quarter: 2014Q3

REPORT INFORMATION
  Report Type: Spontaneous
  Country: JP (occurrence: JP)
  Receive Date: 20140702
  Receipt Date: 20140711
  Transmission Date: 20150326
  Serious: Yes (Hospitalization, Other)
  Sender: FDA-Public Use
  Company Number: PHHY2014JP080093

PATIENT
  Sex: Female

DRUGS (2)
  1. ZOMETA [Suspect]
     Active Substance: ZOLEDRONIC ACID
     Indication: METASTASES TO BONE
     Route: 042
     Dates: start: 201211
  2. AFINITOR [Suspect]
     Active Substance: EVEROLIMUS
     Indication: RENAL CELL CARCINOMA
     Dosage: 10 MG, UNK
     Route: 048
     Dates: start: 201211

REACTIONS (7)
  - Malaise [Unknown]
  - Cardiomegaly [Recovered/Resolved]
  - Renal disorder [Recovered/Resolved]
  - Blood creatinine increased [Unknown]
  - Pleural effusion [Recovered/Resolved]
  - Protein urine present [Unknown]
  - Decreased appetite [Unknown]

NARRATIVE: CASE EVENT DATE: 201212
